FAERS Safety Report 7520185-8 (Version None)
Quarter: 2011Q2

REPORT INFORMATION
  Report Type: 
  Country: None (occurrence: None)
  Receive Date: 20110602
  Receipt Date: 20110204
  Transmission Date: 20111010
  Serious: No
  Sender: FDA-Public Use
  Company Number: US-BAYER-2011-014561

PATIENT
  Sex: Female

DRUGS (2)
  1. ALEVE (CAPLET) [Suspect]
     Dosage: 220 MG, BID
  2. ALEVE (CAPLET) [Suspect]
     Indication: PAIN IN JAW
     Dosage: 440 MG, QID

REACTIONS (1)
  - NO ADVERSE EVENT [None]
